FAERS Safety Report 5199063-8 (Version None)
Quarter: 2006Q4

REPORT INFORMATION
  Report Type: 
  Country: None (occurrence: None)
  Receive Date: 20060919
  Receipt Date: 20060421
  Transmission Date: 20070319
  Serious: Yes (Other)
  Sender: FDA-Public Use
  Company Number: HQWYE967325APR06

PATIENT
  Sex: Female

DRUGS (1)
  1. ADVIL [Suspect]
     Indication: MUSCULOSKELETAL PAIN
     Dosage: 3 CAPSULES, 1 TIME, ORAL
     Route: 048
     Dates: start: 20060401, end: 20060401

REACTIONS (2)
  - GLOSSODYNIA [None]
  - VOMITING [None]
